FAERS Safety Report 11474297 (Version 1)
Quarter: 2015Q3

REPORT INFORMATION
  Report Type: Spontaneous
  Country: CA (occurrence: CA)
  Receive Date: 20150908
  Receipt Date: 20150908
  Transmission Date: 20151125
  Serious: No
  Sender: FDA-Public Use
  Company Number: CA-JAZZ-2014-CA-011031

PATIENT
  Age: 21 Year
  Sex: Female

DRUGS (1)
  1. XYREM [Suspect]
     Active Substance: SODIUM OXYBATE
     Indication: INSOMNIA
     Dosage: 2.25 G, BID
     Route: 048
     Dates: start: 20140820

REACTIONS (3)
  - Abnormal dreams [Unknown]
  - Micturition urgency [Unknown]
  - Product use issue [Unknown]

NARRATIVE: CASE EVENT DATE: 20140820
